FAERS Safety Report 4841863-5 (Version None)
Quarter: 2005Q4

REPORT INFORMATION
  Report Type: 
  Country: None (occurrence: None)
  Receive Date: 20051130
  Receipt Date: 20050919
  Transmission Date: 20060501
  Serious: No
  Sender: FDA-Public Use
  Company Number: US-GLAXOSMITHKLINE-A0574815A

PATIENT
  Age: 30 Year
  Sex: Female

DRUGS (1)
  1. WELLBUTRIN XL [Suspect]
     Indication: ANXIETY
     Dosage: 450MG PER DAY
     Route: 048
     Dates: start: 20050830

REACTIONS (2)
  - DRUG INEFFECTIVE [None]
  - URINE AMPHETAMINE POSITIVE [None]
